FAERS Safety Report 19745083 (Version 2)
Quarter: 2022Q3

REPORT INFORMATION
  Report Type: Report from Study
  Country: CA (occurrence: CA)
  Receive Date: 20210825
  Receipt Date: 20220926
  Transmission Date: 20221027
  Serious: Yes (Hospitalization)
  Sender: FDA-Public Use
  Company Number: CA-MYLANLABS-2021M1055092

PATIENT
  Sex: Female
  Weight: 45.2 kg

DRUGS (1)
  1. OGIVRI [Suspect]
     Active Substance: TRASTUZUMAB-DKST
     Indication: Breast cancer metastatic
     Dosage: 271 MILLIGRAM, Q3W
     Route: 065
     Dates: start: 20210528

REACTIONS (3)
  - Oxygen saturation decreased [Unknown]
  - Influenza like illness [Unknown]
  - Abdominal pain [Unknown]
